FAERS Safety Report 8798096 (Version 1)
Quarter: 2012Q4

REPORT INFORMATION
  Report Type: 
  Country: US (occurrence: US)
  Receive Date: 20120920
  Receipt Date: 20120920
  Transmission Date: 20130627
  Serious: Yes (Other)
  Sender: FDA-Public Use
  Company Number: US-ASTRAZENECA-2012SE71541

PATIENT
  Age: 54 Year
  Sex: Female

DRUGS (1)
  1. RHINOCORT [Suspect]
     Route: 045

REACTIONS (2)
  - Leukaemia [Unknown]
  - Asthma [Unknown]
